FAERS Safety Report 23760507 (Version 2)
Quarter: 2024Q2

REPORT INFORMATION
  Report Type: Report from Study
  Country: BR (occurrence: BR)
  Receive Date: 20240419
  Receipt Date: 20240422
  Transmission Date: 20240716
  Serious: Yes (Other)
  Sender: FDA-Public Use
  Company Number: BR-UCBSA-2024017729

PATIENT
  Sex: Male

DRUGS (1)
  1. LACOSAMIDE [Suspect]
     Active Substance: LACOSAMIDE
     Indication: Epilepsy
     Dosage: 150 MILLIGRAM 2X/DAY (BID) ONE TABLET IN THE MORNING AND ONE TABLET IN THE EVENING
     Dates: start: 2022

REACTIONS (3)
  - Drug dependence [Unknown]
  - Product availability issue [Unknown]
  - Therapy interrupted [Unknown]
